FAERS Safety Report 11670495 (Version 1)
Quarter: 2015Q4

REPORT INFORMATION
  Report Type: Spontaneous
  Country: US (occurrence: US)
  Receive Date: 20151027
  Receipt Date: 20151027
  Transmission Date: 20160304
  Serious: No
  Sender: FDA-Public Use
  Company Number: US-ELI_LILLY_AND_COMPANY-US201005001445

PATIENT
  Age: 45 Year
  Sex: Male

DRUGS (2)
  1. FORTEO [Suspect]
     Active Substance: TERIPARATIDE
     Dosage: 5 DAYS/WEEK
  2. LUPRON [Concomitant]
     Active Substance: LEUPROLIDE ACETATE
     Dosage: UNK, MONTHLY (1/M)

REACTIONS (2)
  - Inappropriate schedule of drug administration [Unknown]
  - Bone density decreased [Unknown]

NARRATIVE: CASE EVENT DATE: 201004
